FAERS Safety Report 24980287 (Version 3)
Quarter: 2025Q1

REPORT INFORMATION
  Report Type: Report from Study
  Country: CN (occurrence: CN)
  Receive Date: 20250218
  Receipt Date: 20250306
  Transmission Date: 20250409
  Serious: Yes (Hospitalization, Other)
  Sender: PFIZER
  Company Number: CN-PFIZER INC-202500036996

PATIENT

DRUGS (2)
  1. MEROPENEM [Interacting]
     Active Substance: MEROPENEM
     Indication: Intracranial infection
     Dosage: 1 G, 3X/DAY
     Route: 042
  2. VALPROATE [Interacting]
     Active Substance: VALPROIC ACID
     Indication: Epilepsy
     Dosage: 0.4 G, 2X/DAY
     Route: 042

REACTIONS (3)
  - Epilepsy [Unknown]
  - Drug interaction [Unknown]
  - Anticonvulsant drug level below therapeutic [Unknown]
